FAERS Safety Report 23044340 (Version 1)
Quarter: 2023Q4

REPORT INFORMATION
  Report Type: Report from Study
  Country: ZA (occurrence: ZA)
  Receive Date: 20231009
  Receipt Date: 20231009
  Transmission Date: 20240110
  Serious: Yes (Hospitalization)
  Sender: FDA-Public Use
  Company Number: ZA-ABBVIE-5440925

PATIENT
  Age: 78 Year
  Sex: Female

DRUGS (1)
  1. OZURDEX [Suspect]
     Active Substance: DEXAMETHASONE
     Indication: Macular degeneration
     Dosage: TIME INTERVAL: AS NECESSARY: FREQUENCY TEXT: EVERY 4 -6 MONTHS
     Route: 031
     Dates: start: 20230314, end: 20230314

REACTIONS (2)
  - Illness [Unknown]
  - Off label use [Unknown]
